FAERS Safety Report 21779385 (Version 1)
Quarter: 2022Q4

REPORT INFORMATION
  Report Type: Other
  Country: MA (occurrence: None)
  Receive Date: 20221226
  Receipt Date: 20221226
  Transmission Date: 20230113
  Serious: Yes (Other)
  Sender: FDA-Public Use
  Company Number: MA-ROCHE-3249306

PATIENT

DRUGS (2)
  1. RITUXIMAB [Suspect]
     Active Substance: RITUXIMAB
     Indication: Rheumatic disorder
     Route: 065
  2. TOCILIZUMAB [Concomitant]
     Active Substance: TOCILIZUMAB
     Route: 065

REACTIONS (8)
  - Bacterial infection [Unknown]
  - Urinary tract infection [Unknown]
  - Pneumonia [Unknown]
  - Arthritis bacterial [Unknown]
  - Tinea infection [Unknown]
  - Hyperleukocytosis [Unknown]
  - C-reactive protein increased [Unknown]
  - Skin infection [Unknown]
